FAERS Safety Report 9354155 (Version 2)
Quarter: 2014Q3

REPORT INFORMATION
  Report Type: Spontaneous
  Country: US (occurrence: US)
  Receive Date: 20130618
  Receipt Date: 20140721
  Transmission Date: 20150326
  Serious: Yes (Hospitalization)
  Sender: FDA-Public Use
  Company Number: US-GLAXOSMITHKLINE-A1027506A

PATIENT
  Age: 88 Year
  Sex: Female

DRUGS (2)
  1. ADVAIR HFA [Suspect]
     Active Substance: FLUTICASONE PROPIONATE\SALMETEROL XINAFOATE
     Indication: EMPHYSEMA
     Route: 055
     Dates: start: 20120418
  2. OXYGEN. [Concomitant]
     Active Substance: OXYGEN

REACTIONS (8)
  - Pain [Recovering/Resolving]
  - Osteoporosis [Unknown]
  - Visual impairment [Unknown]
  - Decreased activity [Unknown]
  - Oxygen supplementation [Unknown]
  - Investigation [Unknown]
  - Blindness [Unknown]
  - Hearing impaired [Unknown]

NARRATIVE: CASE EVENT DATE: 201301
